FAERS Safety Report 6637614-4 (Version None)
Quarter: 2010Q1

REPORT INFORMATION
  Report Type: 
  Country: None (occurrence: None)
  Receive Date: 20100312
  Receipt Date: 20100303
  Transmission Date: 20100710
  Serious: Yes (Hospitalization, Other)
  Sender: FDA-Public Use
  Company Number: 2010US000545

PATIENT
  Age: 53 Year
  Sex: Male

DRUGS (8)
  1. PROGRAF [Suspect]
     Indication: RENAL TRANSPLANT
     Dosage: 5 MG, UID/QD, ORAL, 8 MG, UID/QD, ORAL
     Route: 048
     Dates: start: 20040701, end: 20091214
  2. PROGRAF [Suspect]
     Indication: RENAL TRANSPLANT
     Dosage: 5 MG, UID/QD, ORAL, 8 MG, UID/QD, ORAL
     Route: 048
     Dates: start: 20100104, end: 20100115
  3. PREDNISONE [Concomitant]
  4. CELLCEPT [Concomitant]
  5. METOPROLOL (METOPROLOL) [Concomitant]
  6. TUMS (CALCIUM CARBONATE, MAGNESIUM CARBONATE) [Concomitant]
  7. ASPIRIN [Concomitant]
  8. LASIX [Concomitant]

REACTIONS (9)
  - ANAEMIA [None]
  - DIALYSIS [None]
  - DIARRHOEA [None]
  - DYSPNOEA [None]
  - KIDNEY TRANSPLANT REJECTION [None]
  - METABOLIC ACIDOSIS [None]
  - RENAL FAILURE [None]
  - TREATMENT FAILURE [None]
  - TREATMENT NONCOMPLIANCE [None]
